FAERS Safety Report 7620290-1 (Version None)
Quarter: 2011Q3

REPORT INFORMATION
  Report Type: 
  Country: None (occurrence: None)
  Receive Date: 20110719
  Receipt Date: 20110709
  Transmission Date: 20111222
  Serious: Yes (Hospitalization)
  Sender: FDA-Public Use
  Company Number: PHHY2011US61666

PATIENT
  Sex: Female

DRUGS (8)
  1. RILUTEK [Concomitant]
  2. AMBIEN [Concomitant]
  3. ENOXAPARIN [Concomitant]
  4. LEXAPRO [Concomitant]
  5. TOVIAZ [Concomitant]
  6. GILENYA [Suspect]
     Indication: MULTIPLE SCLEROSIS
     Dosage: 0.5 MG, DAILY
     Route: 048
  7. DIOVAN HCT [Concomitant]
  8. ENOLLASL [Concomitant]

REACTIONS (2)
  - IMMUNODEFICIENCY [None]
  - AMYOTROPHIC LATERAL SCLEROSIS [None]
